FAERS Safety Report 9732530 (Version 1)
Quarter: 2013Q4

REPORT INFORMATION
  Report Type: Spontaneous
  Country: US (occurrence: US)
  Receive Date: 20131204
  Receipt Date: 20131204
  Transmission Date: 20140711
  Serious: No
  Sender: FDA-Public Use
  Company Number: US-ENDO PHARMACEUTICALS INC.-ZOLP20120076

PATIENT
  Sex: Female

DRUGS (3)
  1. ZOLPIDEM TARTRATE TABLETS 5MG [Suspect]
     Indication: INSOMNIA
     Route: 048
  2. MIRTAZAPINE [Suspect]
     Indication: PRODUCT USED FOR UNKNOWN INDICATION
     Route: 065
  3. BUPROPION [Concomitant]
     Indication: PRODUCT USED FOR UNKNOWN INDICATION
     Route: 065

REACTIONS (3)
  - Contusion [Recovering/Resolving]
  - Hypersensitivity [Not Recovered/Not Resolved]
  - Constipation [Unknown]
